FAERS Safety Report 7366112-8 (Version None)
Quarter: 2011Q1

REPORT INFORMATION
  Report Type: 
  Country: None (occurrence: None)
  Receive Date: 20110322
  Receipt Date: 20100927
  Transmission Date: 20110831
  Serious: Yes (Hospitalization, Other)
  Sender: FDA-Public Use
  Company Number: US-BAYER-201022791NA

PATIENT
  Sex: Female
  Weight: 81.633 kg

DRUGS (6)
  1. YAZ [Suspect]
     Route: 048
  2. FLUCONAZOLE [Concomitant]
  3. ACYCLOVIR [Concomitant]
  4. ADVAIR DISKUS 100/50 [Concomitant]
  5. YASMIN [Suspect]
     Indication: CONTRACEPTION
     Dosage: UNK
     Route: 048
     Dates: start: 20080329, end: 20080420
  6. PROAIR HFA [Concomitant]

REACTIONS (1)
  - PULMONARY EMBOLISM [None]
